FAERS Safety Report 7598093-6 (Version None)
Quarter: 2011Q3

REPORT INFORMATION
  Report Type: 
  Country: None (occurrence: None)
  Receive Date: 20110708
  Receipt Date: 20110630
  Transmission Date: 20111222
  Serious: Yes (Hospitalization)
  Sender: FDA-Public Use
  Company Number: US-BAXTER-2011BH021434

PATIENT
  Sex: Female

DRUGS (2)
  1. DIANEAL [Suspect]
     Indication: PERITONEAL DIALYSIS
     Route: 033
  2. UNSPECIFIED MEDICATION [Concomitant]
     Indication: IMPAIRED GASTRIC EMPTYING

REACTIONS (4)
  - IMPAIRED GASTRIC EMPTYING [None]
  - WOUND [None]
  - ULCER [None]
  - PROTEIN TOTAL DECREASED [None]
